FAERS Safety Report 6040645-9 (Version None)
Quarter: 2009Q1

REPORT INFORMATION
  Report Type: 
  Country: None (occurrence: None)
  Receive Date: 20090116
  Receipt Date: 20080428
  Transmission Date: 20090719
  Serious: No
  Sender: FDA-Public Use
  Company Number: US-BRISTOL-MYERS SQUIBB COMPANY-14166995

PATIENT
  Age: 61 Year
  Sex: Female
  Weight: 57 kg

DRUGS (8)
  1. ABILIFY [Suspect]
     Indication: BIPOLAR DISORDER
     Dosage: INITIAL DOSE OF 10MG QD
  2. ABILIFY [Suspect]
     Indication: MULTIPLE SCLEROSIS
     Dosage: INITIAL DOSE OF 10MG QD
  3. LAMICTAL [Concomitant]
  4. FORTEO [Concomitant]
  5. VYTORIN [Concomitant]
  6. VITAMIN E [Concomitant]
  7. FISH OIL [Concomitant]
  8. CALCIUM + VITAMIN D [Concomitant]

REACTIONS (2)
  - GAIT DISTURBANCE [None]
  - INFLUENZA [None]
